FAERS Safety Report 9359849 (Version 1)
Quarter: 2013Q2

REPORT INFORMATION
  Report Type: Spontaneous
  Country: US (occurrence: US)
  Receive Date: 20130621
  Receipt Date: 20130621
  Transmission Date: 20140414
  Serious: No
  Sender: FDA-Public Use
  Company Number: US-009507513-1306USA006751

PATIENT
  Sex: Female

DRUGS (4)
  1. SAPHRIS [Suspect]
     Indication: BIPOLAR DISORDER
     Dosage: TOTAL DAILY DOSE 5 MG
     Route: 060
  2. DEPAKOTE [Concomitant]
     Indication: BIPOLAR DISORDER
     Dosage: TOTAL DAILY DOSE 1000 MG
     Route: 048
     Dates: start: 2002
  3. PAXIL [Concomitant]
     Indication: BIPOLAR DISORDER
     Dosage: TOTAL DAILY DOSE 10 MG
     Route: 048
     Dates: start: 2002
  4. ATIVAN [Concomitant]
     Indication: BIPOLAR DISORDER
     Dosage: TOTAL DAILY DOSE 1 MG
     Route: 048
     Dates: start: 2002

REACTIONS (4)
  - Nightmare [Recovered/Resolved]
  - Restlessness [Recovered/Resolved]
  - Hypoaesthesia oral [Recovered/Resolved]
  - Underdose [Unknown]
